FAERS Safety Report 4389864-8 (Version None)
Quarter: 2004Q2

REPORT INFORMATION
  Report Type: 
  Country: None (occurrence: None)
  Receive Date: 20040630
  Receipt Date: 20040617
  Transmission Date: 20050107
  Serious: Yes (Other)
  Sender: FDA-Public Use
  Company Number: 2004041311

PATIENT
  Sex: Male

DRUGS (4)
  1. VFEND [Suspect]
     Indication: ILL-DEFINED DISORDER
  2. MORPHINE [Concomitant]
  3. KETAMINE HCL [Concomitant]
  4. ACYCLOVIR [Concomitant]

REACTIONS (5)
  - AGITATION [None]
  - COMA [None]
  - CONFUSIONAL STATE [None]
  - HALLUCINATION [None]
  - TACHYPNOEA [None]
